FAERS Safety Report 4291760-1 (Version None)
Quarter: 2004Q1

REPORT INFORMATION
  Report Type: 
  Country: None (occurrence: None)
  Receive Date: 20040211
  Receipt Date: 20030303
  Transmission Date: 20041129
  Serious: No
  Sender: FDA-Public Use
  Company Number: US-GLAXOSMITHKLINE-A0398657A

PATIENT
  Age: 44 Year
  Sex: Male

DRUGS (1)
  1. IMITREX [Suspect]
     Dosage: 1INJ TWICE PER DAY
     Route: 058
     Dates: start: 19930101, end: 20030301

REACTIONS (2)
  - DRUG INEFFECTIVE [None]
  - PHARMACEUTICAL PRODUCT COMPLAINT [None]
